FAERS Safety Report 5289445-8 (Version None)
Quarter: 2007Q2

REPORT INFORMATION
  Report Type: 
  Country: None (occurrence: None)
  Receive Date: 20070406
  Receipt Date: 20070327
  Transmission Date: 20071010
  Serious: Yes (Death, Hospitalization)
  Sender: FDA-Public Use
  Company Number: FR-AMGEN-UK217877

PATIENT
  Age: 71 Year
  Sex: Female

DRUGS (15)
  1. ARANESP [Suspect]
     Indication: ANAEMIA OF MALIGNANT DISEASE
     Route: 065
  2. EPREX [Suspect]
     Route: 065
     Dates: start: 20060804, end: 20060816
  3. OFLOCET [Suspect]
     Route: 048
     Dates: start: 20061004, end: 20061014
  4. NEURONTIN [Suspect]
     Route: 048
     Dates: start: 20061101, end: 20061102
  5. NEXIUM [Suspect]
     Route: 048
     Dates: start: 20061007, end: 20061011
  6. LASIX [Suspect]
     Route: 048
     Dates: start: 20060915, end: 20061013
  7. SINTROM MITIS [Suspect]
     Route: 048
     Dates: start: 20061031, end: 20061102
  8. BACTRIM [Concomitant]
     Route: 065
     Dates: end: 20060904
  9. LEVOTHYROXINE SODIUM [Concomitant]
     Route: 065
     Dates: end: 20061102
  10. COZAAR [Concomitant]
     Route: 065
     Dates: end: 20060920
  11. INIPOMP [Concomitant]
     Route: 065
     Dates: end: 20060908
  12. ORGAMETRIL [Concomitant]
     Route: 065
  13. GAVISCON [Concomitant]
     Route: 065
     Dates: end: 20060911
  14. SIMVASTATIN [Concomitant]
     Route: 065
     Dates: end: 20060908
  15. VALACYCLOVIR HYDROCHLORIDE [Concomitant]
     Route: 065
     Dates: end: 20060920

REACTIONS (16)
  - ANAEMIA [None]
  - ANGIOEDEMA [None]
  - DEHYDRATION [None]
  - ECZEMA [None]
  - EOSINOPHILIA [None]
  - GENERAL PHYSICAL HEALTH DETERIORATION [None]
  - INFLAMMATION [None]
  - NEPHRITIC SYNDROME [None]
  - PRURITUS GENERALISED [None]
  - PYREXIA [None]
  - RENAL FAILURE [None]
  - SEPSIS [None]
  - STAPHYLOCOCCAL INFECTION [None]
  - THROMBOCYTOPENIA [None]
  - TOXIC EPIDERMAL NECROLYSIS [None]
  - URTICARIA GENERALISED [None]
